FAERS Safety Report 12426428 (Version 5)
Quarter: 2020Q4

REPORT INFORMATION
  Report Type: Spontaneous
  Country: US (occurrence: US)
  Receive Date: 20160601
  Receipt Date: 20201125
  Transmission Date: 20210113
  Serious: Yes (Death, Hospitalization)
  Sender: FDA-Public Use
  Company Number: US-JNJFOC-20160528632

PATIENT
  Age: 70 Year
  Sex: Female

DRUGS (2)
  1. XARELTO [Suspect]
     Active Substance: RIVAROXABAN
     Indication: DEEP VEIN THROMBOSIS
     Route: 048
     Dates: start: 20140925
  2. XARELTO [Suspect]
     Active Substance: RIVAROXABAN
     Dosage: 15 - 20 MG
     Route: 048
     Dates: start: 20141023, end: 20150103

REACTIONS (2)
  - Rectal haemorrhage [Unknown]
  - Transient ischaemic attack [Unknown]

NARRATIVE: CASE EVENT DATE: 20150103
